FAERS Safety Report 7573541-6 (Version None)
Quarter: 2011Q2

REPORT INFORMATION
  Report Type: 
  Country: None (occurrence: None)
  Receive Date: 20110627
  Receipt Date: 20110617
  Transmission Date: 20111010
  Serious: Yes (Hospitalization)
  Sender: FDA-Public Use
  Company Number: PHHY2011CA55291

PATIENT
  Sex: Female

DRUGS (2)
  1. PERCOCET [Concomitant]
  2. GILENYA [Suspect]
     Indication: RELAPSING-REMITTING MULTIPLE SCLEROSIS
     Dosage: 0.5 MG,DAILY
     Route: 048
     Dates: start: 20110610

REACTIONS (8)
  - PYREXIA [None]
  - HYPOAESTHESIA [None]
  - APPENDICITIS [None]
  - NAUSEA [None]
  - BLOOD PRESSURE DECREASED [None]
  - ABDOMINAL PAIN LOWER [None]
  - DIZZINESS [None]
  - PARAESTHESIA [None]
